FAERS Safety Report 9626249 (Version 1)
Quarter: 2013Q4

REPORT INFORMATION
  Report Type: Spontaneous
  Country: US (occurrence: None)
  Receive Date: 20131015
  Receipt Date: 20131015
  Transmission Date: 20140711
  Serious: Yes (Other)
  Sender: FDA-Public Use
  Company Number: None

PATIENT
  Age: 50 Year
  Sex: Male
  Weight: 68.04 kg

DRUGS (1)
  1. FLUOXETINE [Suspect]
     Indication: DEPRESSION
     Route: 048
     Dates: start: 20130123, end: 20130123

REACTIONS (8)
  - Respiratory tract irritation [None]
  - Insomnia [None]
  - Dyspepsia [None]
  - Hyperventilation [None]
  - Fatigue [None]
  - Torticollis [None]
  - Muscular weakness [None]
  - Dizziness [None]
